FAERS Safety Report 9591372 (Version 1)
Quarter: 2013Q4

REPORT INFORMATION
  Report Type: Spontaneous
  Country: US (occurrence: US)
  Receive Date: 20131003
  Receipt Date: 20131003
  Transmission Date: 20140711
  Serious: No
  Sender: FDA-Public Use
  Company Number: US-AMGEN-USASP2012080477

PATIENT
  Sex: Female
  Weight: 58.96 kg

DRUGS (8)
  1. ENBREL [Suspect]
     Indication: PRODUCT USED FOR UNKNOWN INDICATION
     Dosage: 50 MG, QWK
     Route: 058
     Dates: start: 2009
  2. VITAMINS /90003601/ [Concomitant]
     Dosage: UNK
  3. ZOLOFT [Concomitant]
     Dosage: 100 MG, UNK
  4. TRAMADOL HCL [Concomitant]
     Dosage: 100 MG, UNK
  5. VITAMIN D3 [Concomitant]
     Dosage: UNK
  6. FISH OIL W/VITAMIN D NOS [Concomitant]
     Dosage: UNK
  7. ALBUTEROL                          /00139501/ [Concomitant]
     Dosage: 90 MUG, UNK
  8. COQ-10 [Concomitant]
     Dosage: 10 MG, UNK

REACTIONS (2)
  - Fatigue [Unknown]
  - Pain [Unknown]
